FAERS Safety Report 9779378 (Version 3)
Quarter: 2014Q2

REPORT INFORMATION
  Report Type: Spontaneous
  Country: US (occurrence: US)
  Receive Date: 20131223
  Receipt Date: 20140401
  Transmission Date: 20141212
  Serious: Yes (Other)
  Sender: FDA-Public Use
  Company Number: US-PERRIGO-13US012885

PATIENT
  Age: 46 Year
  Sex: Male
  Weight: 74.83 kg

DRUGS (3)
  1. NAPROXEN SODIUM 220 MG 368 [Suspect]
     Indication: BACK PAIN
     Dosage: 440 MG, SINGLE AT 0530
     Route: 048
     Dates: start: 20131213, end: 20131213
  2. NAPROXEN SODIUM 220 MG 368 [Suspect]
     Dosage: 440 MG, PRN
     Route: 048
     Dates: start: 201306, end: 201312
  3. ASPIRIN [Concomitant]
     Indication: ROUTINE HEALTH MAINTENANCE
     Dosage: 325MG, HALF TABLET
     Route: 048
     Dates: start: 2008

REACTIONS (9)
  - Hypersensitivity [Recovered/Resolved]
  - Loss of consciousness [Recovered/Resolved]
  - Blood pressure decreased [Recovered/Resolved]
  - Hyperhidrosis [Recovered/Resolved]
  - Pruritus [Recovered/Resolved]
  - Sensation of foreign body [Recovered/Resolved]
  - Erythema [Recovered/Resolved]
  - Fall [Recovered/Resolved]
  - Pain in jaw [Recovered/Resolved]
